FAERS Safety Report 5768491-1 (Version None)
Quarter: 2008Q2

REPORT INFORMATION
  Report Type: 
  Country: None (occurrence: None)
  Receive Date: 20080610
  Receipt Date: 20080526
  Transmission Date: 20081010
  Serious: Yes (Death)
  Sender: FDA-Public Use
  Company Number: 013598

PATIENT
  Age: 49 Year
  Sex: Female
  Weight: 65 kg

DRUGS (6)
  1. PRIALT [Suspect]
     Indication: TRIGEMINAL NERVE DISORDER
     Dosage: 0.16 UG, ONCE/HOUR, INTRATHECAL
     Route: 037
     Dates: start: 20080109, end: 20080516
  2. AMITRIPTLINE HCL [Concomitant]
  3. ZOPICLON (ZOPICLONE) [Concomitant]
  4. MOVICOL (MACROGOL, POTASSIUM CHLORIODE, SODIUM BICARBONATE, SODIUM CHL [Concomitant]
  5. PROMETHAZINE HCL [Concomitant]
  6. STANGYL (TRIMPRAMINE MALEATE) [Concomitant]

REACTIONS (2)
  - RESPIRATORY DISORDER [None]
  - SOPOR [None]
